FAERS Safety Report 18616661 (Version 2)
Quarter: 2021Q1

REPORT INFORMATION
  Report Type: Report from Study
  Country: US (occurrence: US)
  Receive Date: 20201215
  Receipt Date: 20210203
  Transmission Date: 20210419
  Serious: Yes (Other)
  Sender: FDA-Public Use
  Company Number: US-TAIHO ONCOLOGY  INC-EU-2020-04291

PATIENT
  Age: 49 Year
  Sex: Female

DRUGS (31)
  1. LIDOCAINE HCI [Concomitant]
     Dosage: URETHRAL/MUCOSAL
     Route: 066
  2. NYSTATIN. [Concomitant]
     Active Substance: NYSTATIN
  3. MAGIC MOUTHWASH [Concomitant]
     Active Substance: DIPHENHYDRAMINE HYDROCHLORIDE\LIDOCAINE HYDROCHLORIDE\NYSTATIN
  4. IBUPROFEN. [Concomitant]
     Active Substance: IBUPROFEN
  5. LONSURF [Suspect]
     Active Substance: TIPIRACIL HYDROCHLORIDE\TRIFLURIDINE
     Indication: COLON CANCER
     Dosage: CURRENT CYCLE UNKNOWN
     Route: 048
     Dates: start: 20200824
  6. ALPRAZOLAM. [Concomitant]
     Active Substance: ALPRAZOLAM
  7. ANUSOL?HC [Concomitant]
     Active Substance: HYDROCORTISONE
  8. NYSTATIN?TRIAMCINOLONE [Concomitant]
  9. CLEOCIN?T [Concomitant]
  10. FLUCONAZOLE. [Concomitant]
     Active Substance: FLUCONAZOLE
  11. OXYCODONE?ACETAMINOPHEN [Concomitant]
     Active Substance: ACETAMINOPHEN\OXYCODONE HYDROCHLORIDE
  12. HYOSCYAMINE SULFATE. [Concomitant]
     Active Substance: HYOSCYAMINE SULFATE
  13. FUROSEMIDE. [Concomitant]
     Active Substance: FUROSEMIDE
  14. MIRALAX [Concomitant]
     Active Substance: POLYETHYLENE GLYCOL 3350
  15. OXYCODONE HYDROCHLORIDE. [Concomitant]
     Active Substance: OXYCODONE HYDROCHLORIDE
  16. SLOW IRON [Concomitant]
  17. XANAX [Concomitant]
     Active Substance: ALPRAZOLAM
  18. KLOR?CON M10 [Concomitant]
     Active Substance: POTASSIUM CHLORIDE
  19. HYDROCHLOROTHIAZIDE. [Concomitant]
     Active Substance: HYDROCHLOROTHIAZIDE
  20. VITAMIN D [Concomitant]
     Active Substance: VITAMIN D NOS
  21. FERROUS SULFATE. [Concomitant]
     Active Substance: FERROUS SULFATE
  22. KETOCONAZOLE. [Concomitant]
     Active Substance: KETOCONAZOLE
  23. MINOCYCLINE HCI [Concomitant]
  24. METOCLOPRAMIDE HCI [Concomitant]
  25. BACTROBAN NASAL [Concomitant]
     Route: 045
  26. ONDANSETRON HCL [Concomitant]
     Active Substance: ONDANSETRON HYDROCHLORIDE
  27. HYDROCORTISONE (PERIANAL) [Concomitant]
  28. OMEPRAZOLE. [Concomitant]
     Active Substance: OMEPRAZOLE
  29. ANUCORT?HC [Concomitant]
     Active Substance: HYDROCORTISONE ACETATE
  30. LOMOTIL [Concomitant]
     Active Substance: ATROPINE SULFATE\DIPHENOXYLATE HYDROCHLORIDE
  31. FLUOCINONIDE. [Concomitant]
     Active Substance: FLUOCINONIDE

REACTIONS (3)
  - Metastases to lymph nodes [Unknown]
  - Alopecia [Unknown]
  - Nausea [Unknown]
